FAERS Safety Report 10886912 (Version 1)
Quarter: 2015Q1

REPORT INFORMATION
  Report Type: Spontaneous
  Country: US (occurrence: US)
  Receive Date: 20150304
  Receipt Date: 20150304
  Transmission Date: 20150721
  Serious: Yes (Other)
  Sender: FDA-Public Use
  Company Number: US-PFIZER INC-2015073426

PATIENT
  Sex: Female

DRUGS (2)
  1. LYRICA [Suspect]
     Active Substance: PREGABALIN
  2. GABAPENTIN. [Concomitant]
     Active Substance: GABAPENTIN

REACTIONS (8)
  - Suicidal ideation [Unknown]
  - Pruritus [Unknown]
  - Insomnia [Unknown]
  - Agitation [Unknown]
  - Depression [Unknown]
  - Pain in extremity [Unknown]
  - Anxiety [Unknown]
  - Peripheral swelling [Unknown]
